FAERS Safety Report 4408254-2 (Version None)
Quarter: 2004Q3

REPORT INFORMATION
  Report Type: 
  Country: None (occurrence: None)
  Receive Date: 20040726
  Receipt Date: 20040726
  Transmission Date: 20050211
  Serious: Yes (Life-Threatening)
  Sender: FDA-Public Use
  Company Number: None

PATIENT
  Age: 43 Year
  Sex: Male
  Weight: 74 kg

DRUGS (2)
  1. ANCOBON [Suspect]
     Indication: MENINGITIS CRYPTOCOCCAL
     Dosage: 2000 MG Q6H ORAL
     Route: 048
     Dates: start: 20040718, end: 20040721
  2. AMPHOTERICIN B [Concomitant]

REACTIONS (3)
  - BLOOD CREATININE INCREASED [None]
  - JAUNDICE [None]
  - LIVER FUNCTION TEST ABNORMAL [None]
